FAERS Safety Report 12427249 (Version 2)
Quarter: 2019Q1

REPORT INFORMATION
  Report Type: Spontaneous
  Country: US (occurrence: US)
  Receive Date: 20160602
  Receipt Date: 20190217
  Transmission Date: 20190417
  Serious: Yes (Hospitalization, Other)
  Sender: FDA-Public Use
  Company Number: US-JNJFOC-20141012074

PATIENT
  Age: 32 Year
  Sex: Female

DRUGS (4)
  1. TYLENOL EXTRA STRENGTH [Suspect]
     Active Substance: ACETAMINOPHEN
     Indication: PAIN
     Dosage: EVERY 4-6 HOURS 2-3 TIMES A DAY/4 DAYS??5-6 G/DAY
     Route: 048
     Dates: start: 20121010, end: 20121013
  2. TYLENOL EXTRA STRENGTH [Suspect]
     Active Substance: ACETAMINOPHEN
     Indication: PYREXIA
     Dosage: EVERY 4-6 HOURS 2-3 TIMES A DAY/4 DAYS??5-6 G/DAY
     Route: 048
     Dates: start: 20121010, end: 20121013
  3. VICODIN [Suspect]
     Active Substance: ACETAMINOPHEN\HYDROCODONE BITARTRATE
     Indication: PAIN
     Route: 065
     Dates: start: 20121007, end: 20121014
  4. AMOXICILLIN. [Suspect]
     Active Substance: AMOXICILLIN
     Indication: PAIN
     Route: 065
     Dates: start: 20121007, end: 20121014

REACTIONS (2)
  - Liver injury [Not Recovered/Not Resolved]
  - Toxicity to various agents [Unknown]

NARRATIVE: CASE EVENT DATE: 2012
